FAERS Safety Report 24110388 (Version 5)
Quarter: 2024Q4

REPORT INFORMATION
  Report Type: Report from Study
  Country: US (occurrence: US)
  Receive Date: 20240718
  Receipt Date: 20241210
  Transmission Date: 20250115
  Serious: Yes (Other)
  Sender: UCB
  Company Number: US-UCBSA-2024036377

PATIENT
  Sex: Female

DRUGS (4)
  1. FINTEPLA [Suspect]
     Active Substance: FENFLURAMINE
     Indication: Lennox-Gastaut syndrome
     Dosage: 2.6 MILLILITER, 2X/DAY (BID)
     Route: 048
     Dates: start: 20240705
  2. FINTEPLA [Suspect]
     Active Substance: FENFLURAMINE
     Dosage: 5.9 MILLILITER, 2X/DAY (BID)
  3. FINTEPLA [Suspect]
     Active Substance: FENFLURAMINE
     Dosage: 5.9 MILLILITER, 2X/DAY (BID)
     Dates: end: 20240801
  4. FINTEPLA [Suspect]
     Active Substance: FENFLURAMINE
     Dosage: 1 MILLILITER, 2X/DAY (BID)
     Route: 048
     Dates: end: 20240808

REACTIONS (11)
  - Seizure [Not Recovered/Not Resolved]
  - Somnolence [Not Recovered/Not Resolved]
  - Constipation [Not Recovered/Not Resolved]
  - Lethargy [Not Recovered/Not Resolved]
  - Fluid intake reduced [Recovered/Resolved]
  - Gait disturbance [Not Recovered/Not Resolved]
  - Behaviour disorder [Unknown]
  - Decreased appetite [Unknown]
  - Insomnia [Unknown]
  - Hypophagia [Unknown]
  - Adverse drug reaction [Not Recovered/Not Resolved]

NARRATIVE: CASE EVENT DATE: 20240101
